FAERS Safety Report 20360891 (Version 1)
Quarter: 2022Q1

REPORT INFORMATION
  Report Type: Spontaneous
  Country: US (occurrence: US)
  Receive Date: 20220121
  Receipt Date: 20220121
  Transmission Date: 20220423
  Serious: No
  Sender: FDA-Public Use
  Company Number: US-BEH-2021140135

PATIENT
  Sex: Female

DRUGS (10)
  1. HIZENTRA [Suspect]
     Active Substance: HUMAN IMMUNOGLOBULIN G
     Indication: Myasthenia gravis
     Dosage: 14 GRAM, QW
     Route: 058
  2. ERENUMAB [Concomitant]
     Active Substance: ERENUMAB
  3. BUSPIRONE HCL [Concomitant]
     Active Substance: BUSPIRONE HYDROCHLORIDE
  4. CALCIUM\VITAMIN D [Concomitant]
     Active Substance: CALCIUM\VITAMIN D
  5. DECADRAN [DEXAMETHASONE] [Concomitant]
  6. LEVOTHYROXINE SODIUM [Concomitant]
     Active Substance: LEVOTHYROXINE SODIUM
  7. LEXAPRO [Concomitant]
     Active Substance: ESCITALOPRAM OXALATE
  8. LIPITOR [Concomitant]
     Active Substance: ATORVASTATIN CALCIUM
  9. MESTINON [Concomitant]
     Active Substance: PYRIDOSTIGMINE BROMIDE
  10. METRONIDAZOLE [Concomitant]
     Active Substance: METRONIDAZOLE

REACTIONS (3)
  - Depression [Unknown]
  - Fatigue [Unknown]
  - Insomnia [Unknown]
